FAERS Safety Report 8044881-1 (Version None)
Quarter: 2012Q1

REPORT INFORMATION
  Report Type: 
  Country: None (occurrence: None)
  Receive Date: 20120113
  Receipt Date: 20120104
  Transmission Date: 20120608
  Serious: Yes (Other)
  Sender: FDA-Public Use
  Company Number: US-ACTELION-A-US2011-51744

PATIENT

DRUGS (4)
  1. COUMADIN [Concomitant]
  2. OXYGEN [Concomitant]
  3. VENTAVIS [Suspect]
     Indication: PULMONARY ARTERIAL HYPERTENSION
     Dosage: UNK
     Route: 055
     Dates: start: 20110629
  4. REVATIO [Concomitant]

REACTIONS (3)
  - FALL [None]
  - HEADACHE [None]
  - MULTIPLE FRACTURES [None]
